FAERS Safety Report 21570779 (Version 2)
Quarter: 2022Q4

REPORT INFORMATION
  Report Type: Spontaneous
  Country: DE (occurrence: None)
  Receive Date: 20221109
  Receipt Date: 20221213
  Transmission Date: 20230112
  Serious: No
  Sender: FDA-Public Use
  Company Number: DE-ROCHE-3215221

PATIENT
  Age: 68 Year
  Sex: Female

DRUGS (2)
  1. OCREVUS [Suspect]
     Active Substance: OCRELIZUMAB
     Indication: Relapsing multiple sclerosis
     Dosage: TWICE (INITIAL DOSE)
     Route: 065
     Dates: start: 2021
  2. OCREVUS [Suspect]
     Active Substance: OCRELIZUMAB
     Route: 065
     Dates: start: 20220517

REACTIONS (6)
  - Rash pruritic [Recovering/Resolving]
  - Injection site rash [Recovered/Resolved]
  - Skin exfoliation [Not Recovered/Not Resolved]
  - Eye discharge [Not Recovered/Not Resolved]
  - Dandruff [Not Recovered/Not Resolved]
  - Chills [Not Recovered/Not Resolved]

NARRATIVE: CASE EVENT DATE: 20220501
